FAERS Safety Report 17839678 (Version 2)
Quarter: 2021Q4

REPORT INFORMATION
  Report Type: Report from Study
  Country: US (occurrence: US)
  Receive Date: 20200529
  Receipt Date: 20211215
  Transmission Date: 20220303
  Serious: Yes (Life-Threatening, Other)
  Sender: FDA-Public Use
  Company Number: US-PFIZER INC-2020210012

PATIENT
  Age: 18 Month
  Sex: Male

DRUGS (8)
  1. VINCRISTINE SULFATE [Suspect]
     Active Substance: VINCRISTINE SULFATE
     Indication: Hepatoblastoma
     Dosage: 1.5 MG/M2 (7 DOSES )
  2. VINCRISTINE SULFATE [Suspect]
     Active Substance: VINCRISTINE SULFATE
     Indication: Metastases to lung
     Dosage: UNK (50% REDUCED FOR 2 DOSES)
  3. CISPLATIN [Concomitant]
     Active Substance: CISPLATIN
     Indication: Hepatoblastoma
     Dosage: UNK
  4. CISPLATIN [Concomitant]
     Active Substance: CISPLATIN
     Indication: Metastases to lung
  5. FLUOROURACIL [Concomitant]
     Active Substance: FLUOROURACIL
     Indication: Hepatoblastoma
     Dosage: UNK
  6. FLUOROURACIL [Concomitant]
     Active Substance: FLUOROURACIL
     Indication: Metastases to lung
  7. DOXORUBICIN [Concomitant]
     Active Substance: DOXORUBICIN
     Indication: Hepatoblastoma
     Dosage: UNK
  8. DOXORUBICIN [Concomitant]
     Active Substance: DOXORUBICIN
     Indication: Metastases to lung

REACTIONS (3)
  - Vocal cord paralysis [Recovered/Resolved]
  - Neuropathy peripheral [Unknown]
  - Metapneumovirus infection [Unknown]
